FAERS Safety Report 20691454 (Version 1)
Quarter: 2022Q2

REPORT INFORMATION
  Report Type: Spontaneous
  Country: US (occurrence: US)
  Receive Date: 20220408
  Receipt Date: 20220408
  Transmission Date: 20220721
  Serious: Yes (Other)
  Sender: FDA-Public Use
  Company Number: US-TEVA-2022-US-2024892

PATIENT

DRUGS (1)
  1. AMPHETAMINE SULFATE\DEXTROAMPHETAMINE [Suspect]
     Active Substance: AMPHETAMINE SULFATE\DEXTROAMPHETAMINE

REACTIONS (8)
  - Tunnel vision [Unknown]
  - Irritability [Unknown]
  - Feeling abnormal [Unknown]
  - Anxiety [Unknown]
  - Dissociation [Unknown]
  - Disorientation [Unknown]
  - Tinnitus [Unknown]
  - Muscle tightness [Unknown]
